FAERS Safety Report 9318026 (Version 1)
Quarter: 2013Q2

REPORT INFORMATION
  Report Type: Spontaneous
  Country: US (occurrence: US)
  Receive Date: 20130530
  Receipt Date: 20130530
  Transmission Date: 20140414
  Serious: No
  Sender: FDA-Public Use
  Company Number: US-NOVEN-12US005483

PATIENT
  Age: 7 Year
  Sex: Male
  Weight: 19.05 kg

DRUGS (3)
  1. DAYTRANA [Suspect]
     Indication: ATTENTION DEFICIT/HYPERACTIVITY DISORDER
     Dosage: 10 MG, QD
     Route: 062
     Dates: start: 20121002
  2. CLONIDINE [Concomitant]
     Indication: AUTISM
     Dosage: 0.1 MG, UNK
     Route: 048
  3. RISPERDAL [Concomitant]
     Indication: AUTISM
     Dosage: 1 MG, UNK
     Route: 048

REACTIONS (3)
  - Drug administration error [Not Recovered/Not Resolved]
  - Product quality issue [Not Recovered/Not Resolved]
  - No adverse event [None]
